FAERS Safety Report 23366663 (Version 2)
Quarter: 2024Q1

REPORT INFORMATION
  Report Type: Spontaneous
  Country: US (occurrence: US)
  Receive Date: 20240104
  Receipt Date: 20240110
  Transmission Date: 20240410
  Serious: No
  Sender: FDA-Public Use
  Company Number: US-BAYER-2024A001049

PATIENT
  Age: 60 Year
  Sex: Male

DRUGS (1)
  1. BETASERON [Suspect]
     Active Substance: INTERFERON BETA-1B
     Dosage: UNK
     Dates: start: 2009

REACTIONS (5)
  - Noninfective gingivitis [None]
  - Oral disorder [None]
  - Oral pain [None]
  - Eating disorder [None]
  - Depression [None]

NARRATIVE: CASE EVENT DATE: 20231101
